APPROVED DRUG PRODUCT: GANCICLOVIR SODIUM
Active Ingredient: GANCICLOVIR SODIUM
Strength: EQ 500MG BASE/VIAL
Dosage Form/Route: INJECTABLE;INJECTION
Application: A204560 | Product #001
Applicant: ONESOURCE SPECIALTY PTE LTD
Approved: Nov 17, 2017 | RLD: No | RS: No | Type: DISCN